FAERS Safety Report 12866493 (Version 3)
Quarter: 2018Q4

REPORT INFORMATION
  Report Type: Spontaneous
  Country: US (occurrence: US)
  Receive Date: 20161020
  Receipt Date: 20181218
  Transmission Date: 20190204
  Serious: No
  Sender: FDA-Public Use
  Company Number: US-SA-2016SA109916

PATIENT
  Age: 74 Year
  Sex: Female

DRUGS (1)
  1. AUBAGIO [Suspect]
     Active Substance: TERIFLUNOMIDE
     Indication: MULTIPLE SCLEROSIS
     Dosage: 14 MG,QD
     Route: 048
     Dates: start: 20151204, end: 201812

REACTIONS (6)
  - Vomiting [Recovered/Resolved]
  - Photopsia [Unknown]
  - Nausea [Recovered/Resolved]
  - Weight decreased [Unknown]
  - Diarrhoea [Unknown]
  - Hospice care [Unknown]

NARRATIVE: CASE EVENT DATE: 20160531
